FAERS Safety Report 12254976 (Version 3)
Quarter: 2016Q3

REPORT INFORMATION
  Report Type: Spontaneous
  Country: US (occurrence: US)
  Receive Date: 20160411
  Receipt Date: 20160713
  Transmission Date: 20161109
  Serious: No
  Sender: FDA-Public Use
  Company Number: US-PFIZER INC-2016197763

PATIENT
  Age: 80 Year
  Sex: Female

DRUGS (3)
  1. XELJANZ [Suspect]
     Active Substance: TOFACITINIB CITRATE
     Indication: ARTHRITIS
     Dosage: 5 MG, 2X/DAY
     Dates: start: 201511
  2. ISONIAZID. [Concomitant]
     Active Substance: ISONIAZID
     Dosage: 300 MG, DAILY
  3. VITAMIN B6 [Concomitant]
     Active Substance: PYRIDOXINE HYDROCHLORIDE
     Dosage: 50 MG, DAILY

REACTIONS (8)
  - Vomiting [Recovered/Resolved]
  - Hypoacusis [Recovered/Resolved]
  - Sinusitis [Unknown]
  - Middle ear effusion [Unknown]
  - Dry eye [Unknown]
  - Visual impairment [Recovered/Resolved]
  - Dizziness [Recovered/Resolved]
  - Tremor [Recovered/Resolved]
